FAERS Safety Report 8979520 (Version 5)
Quarter: 2013Q1

REPORT INFORMATION
  Report Type: Spontaneous
  Country: JP (occurrence: JP)
  Receive Date: 20121221
  Receipt Date: 20130211
  Transmission Date: 20140127
  Serious: Yes (Death, Life-Threatening)
  Sender: FDA-Public Use
  Company Number: JP-ASTRAZENECA-2012SE94398

PATIENT
  Age: 32 Year
  Sex: Male
  Weight: 63 kg

DRUGS (23)
  1. DIPRIVAN [Suspect]
     Indication: INDUCTION AND MAINTENANCE OF ANAESTHESIA
     Dosage: AT A RATE OF 25 MG/KG/HR, AT INDUCTION AND MAINTENANCE OF ANAESTHESIA: 236.7 MG
     Route: 042
     Dates: start: 20121204, end: 20121205
  2. DIPRIVAN [Suspect]
     Indication: SURGERY
     Dosage: AT A RATE OF 25 MG/KG/HR, AT INDUCTION AND MAINTENANCE OF ANAESTHESIA: 236.7 MG
     Route: 042
     Dates: start: 20121204, end: 20121205
  3. DIPRIVAN [Suspect]
     Indication: INDUCTION AND MAINTENANCE OF ANAESTHESIA
     Dosage: AT SEDATION: 4637 MG
     Route: 042
     Dates: start: 20121204, end: 20121205
  4. DIPRIVAN [Suspect]
     Indication: SURGERY
     Dosage: AT SEDATION: 4637 MG
     Route: 042
     Dates: start: 20121204, end: 20121205
  5. FOSTOIN [Suspect]
     Indication: CONVULSION PROPHYLAXIS
     Route: 040
     Dates: start: 20121204, end: 20121204
  6. PRIMPERAN [Concomitant]
     Indication: VOMITING
     Route: 042
     Dates: start: 20121203
  7. GASTER [Concomitant]
     Route: 041
     Dates: start: 20121203
  8. DORMICUM [Concomitant]
     Indication: SEDATION
     Dosage: 0.5MG/H
     Route: 042
     Dates: start: 20121203, end: 20121204
  9. PENTAGIN [Concomitant]
     Indication: SEDATION
     Route: 030
     Dates: start: 20121203
  10. EPHEDRIN [Concomitant]
     Route: 042
     Dates: start: 20121204, end: 20121204
  11. ULTIVA [Concomitant]
     Route: 042
     Dates: start: 20121204, end: 20121204
  12. XYLOCAINE INJECTION [Concomitant]
     Route: 042
     Dates: start: 20121204, end: 20121204
  13. CEFAMEZIN ALPHA [Concomitant]
     Route: 042
     Dates: start: 20121204, end: 20121205
  14. MANNIGEN [Concomitant]
     Route: 042
     Dates: start: 20121204, end: 20121204
  15. HERBESSER [Concomitant]
     Indication: HYPERTENSION
     Dosage: DOSE UNKNOWN
     Route: 042
     Dates: start: 20121203, end: 20121203
  16. HERBESSER [Concomitant]
     Indication: HYPERTENSION
     Dosage: DOSE UNKNOWN
     Route: 042
     Dates: start: 20121205, end: 20121205
  17. GLYCEOL [Concomitant]
     Dosage: DOSE UNKNOWN
     Route: 041
     Dates: start: 20121203
  18. ERIL [Concomitant]
     Route: 065
     Dates: start: 20121205, end: 20121205
  19. XANBON [Concomitant]
     Route: 065
     Dates: start: 20121205, end: 20121205
  20. SOLU-CORTEF [Concomitant]
     Route: 040
     Dates: start: 20121205
  21. MEROPEN [Concomitant]
     Route: 041
     Dates: start: 20121205
  22. SIGMART [Concomitant]
     Route: 041
     Dates: start: 20121205, end: 20121205
  23. REMINARON [Concomitant]
     Route: 041
     Dates: start: 20121205

REACTIONS (5)
  - Hepatic function abnormal [Not Recovered/Not Resolved]
  - Aspartate aminotransferase increased [None]
  - Alanine aminotransferase increased [None]
  - Blood lactate dehydrogenase increased [None]
  - Blood creatine phosphokinase increased [None]
